FAERS Safety Report 9974033 (Version 1)
Quarter: 2014Q1

REPORT INFORMATION
  Report Type: Spontaneous
  Country: US (occurrence: None)
  Receive Date: 20140127
  Receipt Date: 20140127
  Transmission Date: 20141002
  Serious: Yes (Hospitalization, Other)
  Sender: FDA-Public Use
  Company Number: 1254622

PATIENT
  Age: 56 Year
  Sex: Female
  Weight: 58.88 kg

DRUGS (2)
  1. RITUXIMAB [Suspect]
     Indication: PRODUCT USED FOR UNKNOWN INDICATION
  2. ARZERRA [Suspect]
     Route: 042
     Dates: start: 201203, end: 201208

REACTIONS (3)
  - Interstitial lung disease [None]
  - Bronchiolitis [None]
  - Aspergillus infection [None]
